FAERS Safety Report 15896924 (Version 1)
Quarter: 2019Q1

REPORT INFORMATION
  Report Type: Spontaneous
  Country: NO (occurrence: NO)
  Receive Date: 20190131
  Receipt Date: 20190131
  Transmission Date: 20190417
  Serious: Yes (Life-Threatening, Hospitalization)
  Sender: FDA-Public Use
  Company Number: NO-MYLANLABS-2019M1008513

PATIENT
  Age: 79 Year
  Sex: Female

DRUGS (1)
  1. AZACITIDINE. [Suspect]
     Active Substance: AZACITIDINE
     Indication: MYELODYSPLASTIC SYNDROME
     Dosage: ON DAY 1 TO 5
     Route: 058

REACTIONS (4)
  - Lung consolidation [Recovering/Resolving]
  - Skin necrosis [Recovering/Resolving]
  - Acute febrile neutrophilic dermatosis [Recovering/Resolving]
  - Cardiovascular disorder [Recovering/Resolving]
